FAERS Safety Report 9123616 (Version 1)
Quarter: 2013Q1

REPORT INFORMATION
  Report Type: Spontaneous
  Country: BR (occurrence: BR)
  Receive Date: 20130227
  Receipt Date: 20130227
  Transmission Date: 20140127
  Serious: Yes (Hospitalization)
  Sender: FDA-Public Use
  Company Number: BR-009507513-1302BRA012240

PATIENT
  Sex: Female
  Weight: 75 kg

DRUGS (7)
  1. LOSARTAN POTASSIUM [Suspect]
     Indication: HYPERTENSION
     Dosage: UNK
     Route: 048
     Dates: end: 201210
  2. CAPTOPRIL [Concomitant]
     Indication: HYPERTENSION
     Dosage: UNK
     Route: 048
     Dates: end: 201210
  3. HYDROCHLOROTHIAZIDE [Concomitant]
     Indication: HYPERTENSION
     Dosage: 25 MG, BID
     Route: 048
  4. DIAZEPAM [Concomitant]
     Indication: MIGRAINE
     Dosage: 10 MG, QD
     Route: 048
     Dates: start: 201210
  5. DIAZEPAM [Concomitant]
     Indication: ANXIETY
  6. ABLOK [Concomitant]
     Indication: HYPERTENSION
     Dosage: 50 MG, BID
     Route: 048
     Dates: start: 201210
  7. ARADOIS [Concomitant]
     Indication: HYPERTENSION
     Dosage: 50 MG, Q8H
     Route: 048
     Dates: start: 201210

REACTIONS (11)
  - Female sterilisation [Unknown]
  - Perineal operation [Unknown]
  - Uterine leiomyoma [Not Recovered/Not Resolved]
  - Cardiomegaly [Unknown]
  - Dysuria [Unknown]
  - Urinary tract infection [Unknown]
  - Blood pressure inadequately controlled [Recovered/Resolved]
  - Exposure during pregnancy [Unknown]
  - Exposure during pregnancy [Unknown]
  - Exposure during pregnancy [Unknown]
  - Exposure during pregnancy [Unknown]
